FAERS Safety Report 5485477-5 (Version None)
Quarter: 2007Q4

REPORT INFORMATION
  Report Type: 
  Country: None (occurrence: None)
  Receive Date: 20071011
  Receipt Date: 20070925
  Transmission Date: 20080405
  Serious: Yes (Death)
  Sender: FDA-Public Use
  Company Number: 07H-167-0313294-00

PATIENT
  Age: 62 Year
  Sex: Male

DRUGS (2)
  1. PROPOFOL [Suspect]
     Indication: SEDATIVE THERAPY
     Dosage: 1.5 MG, NOT REPORTED, INTRAVENOUS
     Route: 042
  2. REMIFENTANIL [Suspect]
     Indication: SEDATIVE THERAPY
     Dosage: 5 MG, NOT REPORTED, INTRAVENOUS
     Route: 042

REACTIONS (4)
  - APNOEA [None]
  - BRAIN DAMAGE [None]
  - CARDIAC ARREST [None]
  - SEDATION [None]
